FAERS Safety Report 21916392 (Version 1)
Quarter: 2023Q1

REPORT INFORMATION
  Report Type: Spontaneous
  Country: None (occurrence: US)
  Receive Date: 20230126
  Receipt Date: 20230126
  Transmission Date: 20230418
  Serious: Yes (Life-Threatening, Hospitalization, Disabling)
  Sender: FDA-Public Use
  Company Number: US-Nostrum Laboratories, Inc.-2137000

PATIENT
  Age: 46 Year
  Sex: Female

DRUGS (2)
  1. HYDROMORPHONE HYDROCHLORIDE [Suspect]
     Active Substance: HYDROMORPHONE HYDROCHLORIDE
     Indication: Neck pain
     Route: 042
  2. FENTANYL [Interacting]
     Active Substance: FENTANYL
     Route: 042

REACTIONS (6)
  - Acute respiratory failure [Recovered/Resolved]
  - Hypertension [Recovered/Resolved]
  - Quadriplegia [Recovered/Resolved with Sequelae]
  - Spinal epidural haematoma [Recovered/Resolved]
  - Spinal fusion surgery [Recovered/Resolved]
  - Urinary retention [None]
